FAERS Safety Report 14643525 (Version 2)
Quarter: 2018Q1

REPORT INFORMATION
  Report Type: Report from Study
  Country: FR (occurrence: FR)
  Receive Date: 20180315
  Receipt Date: 20180327
  Transmission Date: 20180509
  Serious: Yes (Death)
  Sender: FDA-Public Use
  Company Number: FR-PFIZER INC-2018109251

PATIENT
  Age: 4 Month
  Sex: Male
  Weight: 6 kg

DRUGS (19)
  1. DEXCHLORPHENIRAMINE [Suspect]
     Active Substance: DEXCHLORPHENIRAMINE
     Indication: PREMEDICATION
     Dosage: 5 MG, 1X/DAY
     Route: 042
     Dates: start: 20170603, end: 20170604
  2. DEXCHLORPHENIRAMINE [Suspect]
     Active Substance: DEXCHLORPHENIRAMINE
     Indication: FAMILIAL HAEMOPHAGOCYTIC LYMPHOHISTIOCYTOSIS
  3. PARACETAMOL [Suspect]
     Active Substance: ACETAMINOPHEN
     Indication: PREMEDICATION
  4. POLARAMINE [Concomitant]
     Active Substance: DEXCHLORPHENIRAMINE MALEATE
     Indication: PREMEDICATION
  5. VANCOMYCIN [Concomitant]
     Active Substance: VANCOMYCIN
  6. AMIKLIN /00391001/ [Concomitant]
     Active Substance: AMIKACIN SULFATE
     Dosage: 1 DF 25 MG/KG
     Dates: start: 20170525, end: 20170525
  7. NEORAL [Concomitant]
     Active Substance: CYCLOSPORINE
     Dosage: 10 MG, 2X/DAY EVERY 12 HOURS
     Route: 048
     Dates: start: 20170603
  8. SOLU-MEDROL [Concomitant]
     Active Substance: METHYLPREDNISOLONE SODIUM SUCCINATE
     Indication: PREMEDICATION
     Dosage: 2 MG, UNK
  9. AMIKACIN [Concomitant]
     Active Substance: AMIKACIN
     Dosage: 160 MG, 1X/DAY
     Dates: start: 20170603
  10. ROCEPHINE [Concomitant]
     Active Substance: CEFTRIAXONE SODIUM
     Dosage: UNK
     Dates: start: 20170525, end: 20170527
  11. METHYLPREDNISOLONE SODIUM SUCCINATE. [Suspect]
     Active Substance: METHYLPREDNISOLONE SODIUM SUCCINATE
     Indication: PREMEDICATION
  12. BACTRIM [Suspect]
     Active Substance: SULFAMETHOXAZOLE\TRIMETHOPRIM
     Indication: PROPHYLAXIS
     Dosage: 3 WEEKLY
  13. PARACETAMOL [Suspect]
     Active Substance: ACETAMINOPHEN
     Indication: FAMILIAL HAEMOPHAGOCYTIC LYMPHOHISTIOCYTOSIS
     Dosage: 0.03 MG, 1X/DAY
     Route: 042
     Dates: start: 20170603, end: 20170604
  14. CAMPATH [Suspect]
     Active Substance: ALEMTUZUMAB
     Dosage: 6.3 MG, 1X/DAY
     Route: 041
     Dates: start: 20170604, end: 20170604
  15. TAZOCILLINE [Concomitant]
     Active Substance: PIPERACILLIN SODIUM\TAZOBACTAM SODIUM
     Dosage: 2500 MG, 1X/DAY
     Route: 042
     Dates: start: 20170603
  16. METHYLPREDNISOLONE SODIUM SUCCINATE. [Suspect]
     Active Substance: METHYLPREDNISOLONE SODIUM SUCCINATE
     Indication: FAMILIAL HAEMOPHAGOCYTIC LYMPHOHISTIOCYTOSIS
     Dosage: 2 MG, 1X/DAY
     Route: 042
     Dates: start: 20170603, end: 20170604
  17. CAMPATH [Suspect]
     Active Substance: ALEMTUZUMAB
     Indication: FAMILIAL HAEMOPHAGOCYTIC LYMPHOHISTIOCYTOSIS
     Dosage: 3.3 MG, 1X/DAY
     Route: 041
     Dates: start: 20170603, end: 20170603
  18. TAZOCILLINE [Concomitant]
     Active Substance: PIPERACILLIN SODIUM\TAZOBACTAM SODIUM
     Dosage: UNK
     Dates: start: 20170528
  19. CYCLOSPORINE. [Suspect]
     Active Substance: CYCLOSPORINE
     Indication: PREMEDICATION
     Dosage: UNK
     Dates: start: 20170528

REACTIONS (3)
  - Anaphylactic shock [Fatal]
  - Sepsis [Fatal]
  - Cardiac failure [Fatal]

NARRATIVE: CASE EVENT DATE: 20170603
